FAERS Safety Report 9994840 (Version 1)
Quarter: 2014Q1

REPORT INFORMATION
  Report Type: Spontaneous
  Country: US (occurrence: None)
  Receive Date: 20140307
  Receipt Date: 20140307
  Transmission Date: 20141002
  Serious: No
  Sender: FDA-Public Use
  Company Number: None

PATIENT
  Age: 67 Year
  Sex: Female
  Weight: 65.32 kg

DRUGS (1)
  1. TAXOL [Suspect]
     Indication: UTERINE CANCER

REACTIONS (3)
  - Myalgia [None]
  - Neuropathy peripheral [None]
  - Drug hypersensitivity [None]
